FAERS Safety Report 17218113 (Version 2)
Quarter: 2020Q2

REPORT INFORMATION
  Report Type: Spontaneous
  Country: FR (occurrence: FR)
  Receive Date: 20191231
  Receipt Date: 20200424
  Transmission Date: 20200713
  Serious: Yes (Death, Other)
  Sender: FDA-Public Use
  Company Number: FR-GLAXOSMITHKLINE-FR2019GSK237376

PATIENT
  Age: 70 Year
  Sex: Male
  Weight: 130 kg

DRUGS (6)
  1. PRASUGREL HYDROCHLORIDE [Suspect]
     Active Substance: PRASUGREL HYDROCHLORIDE
     Indication: MYOCARDIAL INFARCTION
     Dosage: 10 MG, QD
     Route: 048
     Dates: start: 20191116
  2. KARDEGIC [Suspect]
     Active Substance: ASPIRIN DL-LYSINE
     Indication: MYOCARDIAL INFARCTION
     Dosage: 75 MG, QD
     Route: 048
     Dates: start: 20191106
  3. NICOTINE. [Suspect]
     Active Substance: NICOTINE
     Indication: MYOCARDIAL INFARCTION
     Dosage: 1 DF, QD
     Route: 062
     Dates: start: 20191116
  4. BISOPROLOL FUMARATE. [Suspect]
     Active Substance: BISOPROLOL FUMARATE
     Indication: MYOCARDIAL INFARCTION
     Dosage: 2.5 MG, QD
     Route: 048
     Dates: start: 20191116
  5. RAMIPRIL. [Suspect]
     Active Substance: RAMIPRIL
     Indication: MYOCARDIAL INFARCTION
     Dosage: 1.25 MG, QD
     Route: 048
     Dates: start: 20191116
  6. ATORVASTATIN [Suspect]
     Active Substance: ATORVASTATIN
     Indication: MYOCARDIAL INFARCTION
     Dosage: 80 MG, QD
     Route: 048
     Dates: start: 20191116, end: 20191205

REACTIONS (2)
  - Liver disorder [Fatal]
  - Rhabdomyolysis [Fatal]

NARRATIVE: CASE EVENT DATE: 20191204
